FAERS Safety Report 7067335-8 (Version None)
Quarter: 2010Q4

REPORT INFORMATION
  Report Type: 
  Country: None (occurrence: None)
  Receive Date: 20101022
  Receipt Date: 20101022
  Transmission Date: 20110411
  Serious: Yes (Hospitalization)
  Sender: FDA-Public Use
  Company Number: None

PATIENT
  Age: 79 Year
  Sex: Female
  Weight: 74.8435 kg

DRUGS (29)
  1. VENOFER [Suspect]
     Indication: IRON DEFICIENCY ANAEMIA
     Dosage: 200 MG ONCE IV
     Route: 042
     Dates: start: 20100930, end: 20100930
  2. FLUCONAZOLE [Concomitant]
  3. WARFARIN [Concomitant]
  4. ALBUTEROL [Concomitant]
  5. ASPIRIN [Concomitant]
  6. BUDESONIDE [Concomitant]
  7. DARBEPOETIN ALFA [Concomitant]
  8. DOCUSATE [Concomitant]
  9. ERTAPENEM [Concomitant]
  10. HEPARIN [Concomitant]
  11. HYDROCODONE BITARTRATE/HOMATROPINE METHYBROMIDE [Concomitant]
  12. INSULIN GLARGINE [Concomitant]
  13. INSULIN LISPRO [Concomitant]
  14. IPRATROPIUM BROMIDE [Concomitant]
  15. LEVOFLOXACIN [Concomitant]
  16. LEVOTHYROXINE [Concomitant]
  17. LIDOCAINE HYDROCHLORIDE IN PLASTIC CONTAINER [Concomitant]
  18. MEMANTINE [Concomitant]
  19. METOPROLOL XL [Concomitant]
  20. NIACIN [Concomitant]
  21. NYSTATIN [Concomitant]
  22. OMEGA-3 FATTY ACID [Concomitant]
  23. PANTOPRAZOLE [Concomitant]
  24. PRAMIPEXOLE [Concomitant]
  25. MULTI-VITAMIN [Concomitant]
  26. RIVASTIGMINE [Concomitant]
  27. TRYPSIN-BALSAM-CASTOR OIL [Concomitant]
  28. VANCOMCIN [Concomitant]
  29. ZOLPIDEM [Concomitant]

REACTIONS (1)
  - STEVENS-JOHNSON SYNDROME [None]
